FAERS Safety Report 5747652-1 (Version None)
Quarter: 2008Q2

REPORT INFORMATION
  Report Type: 
  Country: None (occurrence: None)
  Receive Date: 20080523
  Receipt Date: 20080514
  Transmission Date: 20081010
  Serious: Yes (Other)
  Sender: FDA-Public Use
  Company Number: CA-JNJFOC-20080503365

PATIENT
  Sex: Male
  Weight: 80.4 kg

DRUGS (3)
  1. REMICADE [Suspect]
     Dosage: 33 INFUSIONS, END DATE MAY-2008
     Route: 042
  2. REMICADE [Suspect]
     Indication: RHEUMATOID ARTHRITIS
     Route: 042
  3. BENADRYL [Concomitant]
     Indication: PREMEDICATION
     Route: 048

REACTIONS (3)
  - CARDIOMEGALY [None]
  - INFUSION RELATED REACTION [None]
  - PRURITUS [None]
